FAERS Safety Report 4842665-6 (Version None)
Quarter: 2005Q4

REPORT INFORMATION
  Report Type: 
  Country: None (occurrence: None)
  Receive Date: 20051201
  Receipt Date: 20050912
  Transmission Date: 20060501
  Serious: Yes (Disabling)
  Sender: FDA-Public Use
  Company Number: DE-BOEHRINGER INGELHEIM PHARMACEUTICALS, INC.-2005-DE-03697DE

PATIENT
  Sex: Male
  Weight: 24 kg

DRUGS (3)
  1. ATROVENT LS [Suspect]
     Indication: ASTHMA
     Dosage: 3 TIMES DAILY ACCORDING TO PRODUCT INFORMATION
     Route: 055
  2. CETIRIZIN [Concomitant]
  3. SALBUTAMOL [Concomitant]

REACTIONS (4)
  - DENTAL CARIES [None]
  - TOOTH DISCOLOURATION [None]
  - TOOTH HYPOPLASIA [None]
  - TOOTH MALFORMATION [None]
